FAERS Safety Report 5625018-2 (Version None)
Quarter: 2008Q1

REPORT INFORMATION
  Report Type: 
  Country: None (occurrence: None)
  Receive Date: 20080208
  Receipt Date: 20080123
  Transmission Date: 20080703
  Serious: Yes (Hospitalization)
  Sender: FDA-Public Use
  Company Number: 2008PL000007

PATIENT
  Age: 65 Year
  Sex: Male

DRUGS (15)
  1. AZATHIOPRINE [Suspect]
     Indication: CROHN'S DISEASE
     Dosage: 100 MG; QD; PO
     Route: 048
  2. AZATHIOPRINE [Suspect]
     Indication: CROHN'S DISEASE
     Dosage: 100 MG; QD; PO
     Route: 048
  3. AMLODIPINE [Concomitant]
  4. ASPIRIN [Concomitant]
  5. ATENOLOL [Concomitant]
  6. BENDROFLUAZIDE [Concomitant]
  7. CARBAMAZEPINE [Concomitant]
  8. ACETAMINOPHEN [Concomitant]
  9. PAROXETINE HCL [Concomitant]
  10. QUINAPRIL HCL [Concomitant]
  11. TEMAZEPAM [Concomitant]
  12. OTHER ANTI-ASTHMATICS, INHALANTS [Concomitant]
  13. IRON [Concomitant]
  14. POTASSIUM CHLORIDE [Concomitant]
  15. NITROGLYCERIN [Concomitant]

REACTIONS (5)
  - BONE MARROW FAILURE [None]
  - MITOCHONDRIAL ENZYME DEFICIENCY [None]
  - MYELODYSPLASTIC SYNDROME [None]
  - NEUTROPENIC SEPSIS [None]
  - PANCYTOPENIA [None]
